FAERS Safety Report 8100226-X (Version None)
Quarter: 2012Q1

REPORT INFORMATION
  Report Type: 
  Country: None (occurrence: None)
  Receive Date: 20120131
  Receipt Date: 20120125
  Transmission Date: 20120608
  Serious: Yes (Congenital Anomaly, Other)
  Sender: FDA-Public Use
  Company Number: US-PFIZER INC-2011199291

PATIENT
  Sex: Male
  Weight: 3.3 kg

DRUGS (2)
  1. ZOLOFT [Suspect]
     Dosage: UNK
     Route: 064
     Dates: start: 20030101
  2. ZOLOFT [Suspect]
     Dosage: 100 MG, UNK
     Route: 064

REACTIONS (3)
  - CONGENITAL ANOMALY [None]
  - FOETAL EXPOSURE DURING PREGNANCY [None]
  - PULMONARY HYPERTENSION [None]
